FAERS Safety Report 6913947-9 (Version None)
Quarter: 2010Q3

REPORT INFORMATION
  Report Type: 
  Country: None (occurrence: None)
  Receive Date: 20100805
  Receipt Date: 20100805
  Transmission Date: 20110219
  Serious: Yes (Hospitalization)
  Sender: FDA-Public Use
  Company Number: None

PATIENT
  Sex: Male

DRUGS (2)
  1. INVEGA SUSTENNA [Suspect]
     Indication: SCHIZOAFFECTIVE DISORDER
     Dosage: INVEGA SUSTENNA 234 MG IM ; INVEGA SUSTENNA 156 MG IM
     Route: 030
     Dates: start: 20100715
  2. INVEGA SUSTENNA [Suspect]
     Indication: SCHIZOAFFECTIVE DISORDER
     Dosage: INVEGA SUSTENNA 234 MG IM ; INVEGA SUSTENNA 156 MG IM
     Route: 030
     Dates: start: 20100722

REACTIONS (5)
  - AGITATION [None]
  - COORDINATION ABNORMAL [None]
  - MUSCLE RIGIDITY [None]
  - SEDATION [None]
  - UNRESPONSIVE TO STIMULI [None]
